FAERS Safety Report 4682937-1 (Version None)
Quarter: 2005Q2

REPORT INFORMATION
  Report Type: 
  Country: None (occurrence: None)
  Receive Date: 20050602
  Receipt Date: 20050218
  Transmission Date: 20051028
  Serious: No
  Sender: FDA-Public Use
  Company Number: US_0503113764

PATIENT

DRUGS (1)
  1. CYMBALTA [Suspect]
     Dosage: 60 MG
     Dates: start: 20041001, end: 20041201

REACTIONS (5)
  - APATHY [None]
  - ASTHENIA [None]
  - DEPRESSION [None]
  - DISTURBANCE IN ATTENTION [None]
  - FATIGUE [None]
